FAERS Safety Report 23778001 (Version 2)
Quarter: 2024Q2

REPORT INFORMATION
  Report Type: Spontaneous
  Country: US (occurrence: US)
  Receive Date: 20240424
  Receipt Date: 20240426
  Transmission Date: 20240716
  Serious: No
  Sender: FDA-Public Use
  Company Number: US-PFIZER INC-202400083709

PATIENT
  Age: 14 Year
  Sex: Male
  Weight: 39.002 kg

DRUGS (1)
  1. GENOTROPIN [Suspect]
     Active Substance: SOMATROPIN
     Indication: Short stature
     Dosage: 2 MG, DAILY

REACTIONS (6)
  - Device leakage [Unknown]
  - Liquid product physical issue [Unknown]
  - Product odour abnormal [Unknown]
  - Device physical property issue [Unknown]
  - Drug dose omission by device [Unknown]
  - Poor quality device used [Unknown]
